FAERS Safety Report 25349614 (Version 2)
Quarter: 2025Q2

REPORT INFORMATION
  Report Type: Spontaneous
  Country: CN (occurrence: CN)
  Receive Date: 20250522
  Receipt Date: 20250528
  Transmission Date: 20250716
  Serious: Yes (Hospitalization, Other)
  Sender: SANOFI AVENTIS
  Company Number: CN-SA-2025SA143554

PATIENT
  Age: 77 Year
  Sex: Female
  Weight: 65 kg

DRUGS (7)
  1. CLOPIDOGREL BISULFATE [Suspect]
     Active Substance: CLOPIDOGREL BISULFATE
     Indication: Platelet aggregation abnormal
     Dosage: 75 MG, QD
     Route: 048
     Dates: start: 20250505, end: 20250509
  2. ENOXAPARIN SODIUM [Suspect]
     Active Substance: ENOXAPARIN SODIUM
     Indication: Platelet aggregation abnormal
     Dosage: 4000 IU, QD
     Route: 058
     Dates: start: 20250509, end: 20250510
  3. ASPIRIN [Suspect]
     Active Substance: ASPIRIN
     Indication: Platelet aggregation abnormal
     Dosage: 100 MG, QD
     Route: 048
     Dates: start: 20250505, end: 20250509
  4. PAPAVERINE HYDROCHLORIDE [Suspect]
     Active Substance: PAPAVERINE HYDROCHLORIDE
     Indication: Infarction
     Dosage: 60 MG, QD
     Route: 041
     Dates: start: 20250505, end: 20250510
  5. ALBUMIN HUMAN [Concomitant]
     Active Substance: ALBUMIN HUMAN
     Indication: Blood albumin decreased
     Dosage: 10 G, BID
     Route: 041
     Dates: start: 20250508, end: 20250511
  6. SODIUM CHLORIDE [Concomitant]
     Active Substance: SODIUM CHLORIDE
     Indication: Vehicle solution use
     Dosage: 250 ML, QD
     Route: 041
     Dates: start: 20250505, end: 20250509
  7. ROSUVASTATIN CALCIUM [Concomitant]
     Active Substance: ROSUVASTATIN CALCIUM
     Indication: Lipids increased
     Dosage: 10 MG, QD
     Route: 048
     Dates: start: 20250505, end: 20250511

REACTIONS (11)
  - Prothrombin time prolonged [Unknown]
  - International normalised ratio increased [Unknown]
  - Haemoglobin decreased [Unknown]
  - Chest discomfort [Unknown]
  - Coagulopathy [Unknown]
  - Lower gastrointestinal haemorrhage [Unknown]
  - Anaemia [Unknown]
  - Cough [Unknown]
  - Productive cough [Unknown]
  - Malaise [Unknown]
  - Depressed mood [Unknown]

NARRATIVE: CASE EVENT DATE: 20250509
